FAERS Safety Report 4858526-2 (Version None)
Quarter: 2005Q4

REPORT INFORMATION
  Report Type: 
  Country: None (occurrence: None)
  Receive Date: 20051219
  Receipt Date: 20051207
  Transmission Date: 20060501
  Serious: Yes (Hospitalization, Other)
  Sender: FDA-Public Use
  Company Number: US-JNJFOC-20040806598

PATIENT
  Sex: Female
  Weight: 58.97 kg

DRUGS (9)
  1. REMICADE [Suspect]
     Dosage: APPROXIMATELY 7 MG/KG
     Route: 042
  2. REMICADE [Suspect]
     Dosage: 8 INFUSIONS RECEIVED, DATES UNSPECIFIED
     Route: 042
  3. REMICADE [Suspect]
     Dosage: APPROXIMATELY 7 MG/KG
     Route: 042
  4. REMICADE [Suspect]
     Indication: CROHN'S DISEASE
     Route: 042
  5. CIPRO [Concomitant]
  6. FLAGYL [Concomitant]
  7. BIRTH CONTROL [Concomitant]
  8. LIBRAX [Concomitant]
  9. LIBRAX [Concomitant]

REACTIONS (7)
  - ABDOMINAL PAIN [None]
  - COLITIS [None]
  - CONDITION AGGRAVATED [None]
  - GRANULOMA [None]
  - HEPATIC MASS [None]
  - LYMPHADENOPATHY [None]
  - TUBERCULOSIS [None]
